FAERS Safety Report 7729046-2 (Version None)
Quarter: 2011Q3

REPORT INFORMATION
  Report Type: 
  Country: None (occurrence: None)
  Receive Date: 20110906
  Receipt Date: 20110825
  Transmission Date: 20111222
  Serious: Yes (Hospitalization)
  Sender: FDA-Public Use
  Company Number: US-BAYER-2011-080464

PATIENT
  Age: 28 Year
  Sex: Female
  Weight: 90.703 kg

DRUGS (6)
  1. YAZ [Suspect]
     Indication: HIRSUTISM
  2. YAZ [Suspect]
     Indication: MENSTRUATION IRREGULAR
  3. BENADRYL [ACRIVASTINE] [Concomitant]
  4. ZANTAC [Concomitant]
     Indication: GASTROOESOPHAGEAL REFLUX DISEASE
  5. YAZ [Suspect]
     Indication: CONTRACEPTION
     Dosage: UNK
     Dates: start: 20080101, end: 20090501
  6. YAZ [Suspect]
     Indication: ACNE

REACTIONS (3)
  - GALLBLADDER PAIN [None]
  - CHOLELITHIASIS [None]
  - CHOLECYSTITIS CHRONIC [None]
